FAERS Safety Report 8820514 (Version 1)
Quarter: 2012Q4

REPORT INFORMATION
  Report Type: Report from Study
  Country: JP (occurrence: JP)
  Receive Date: 20121002
  Receipt Date: 20121002
  Transmission Date: 20130627
  Serious: Yes (Life-Threatening, Hospitalization)
  Sender: FDA-Public Use
  Company Number: JP-SANOFI-AVENTIS-2012SA071807

PATIENT
  Sex: Female
  Weight: 48.2 kg

DRUGS (13)
  1. CLOPIDOGREL BISULFATE [Suspect]
     Indication: ST SEGMENT ELEVATION MYOCARDIAL INFARCTION
     Route: 065
     Dates: start: 20110805, end: 20110805
  2. BAYASPIRIN [Concomitant]
     Indication: REACTION UNEVALUABLE
     Dates: start: 20110805, end: 20110805
  3. NOREPINEPHRINE [Concomitant]
     Dates: start: 20110805, end: 20110805
  4. NITOROL [Concomitant]
     Indication: REACTION UNEVALUABLE
     Dates: start: 20110805, end: 20110805
  5. ATROPINE SULFATE [Concomitant]
     Dates: start: 20110805, end: 20110805
  6. MICARDIS [Concomitant]
     Dates: start: 20110805
  7. SIGMART [Concomitant]
     Indication: REACTION UNEVALUABLE
     Dates: start: 20110805, end: 20110805
  8. CATABON [Concomitant]
     Dates: start: 20110805, end: 20110805
  9. GLYCERYL TRINITRATE [Concomitant]
     Dates: start: 20110805, end: 20110813
  10. PENTAGIN [Concomitant]
     Dates: start: 20110805, end: 20110809
  11. MELEX [Concomitant]
  12. NITROPEN [Concomitant]
     Indication: REACTION UNEVALUABLE
     Dates: start: 20110805, end: 20110805
  13. PROTECADIN [Concomitant]
     Dates: start: 20110805

REACTIONS (1)
  - Cardiac tamponade [Recovered/Resolved]
